FAERS Safety Report 15041367 (Version 3)
Quarter: 2018Q4

REPORT INFORMATION
  Report Type: Report from Study
  Country: US (occurrence: US)
  Receive Date: 20180621
  Receipt Date: 20181218
  Transmission Date: 20190204
  Serious: Yes (Death, Hospitalization, Other)
  Sender: FDA-Public Use
  Company Number: PHEH2018US024799

PATIENT
  Age: 68 Year
  Sex: Male

DRUGS (2)
  1. SANDOSTATIN LAR DEPOT [Suspect]
     Active Substance: OCTREOTIDE ACETATE
     Indication: PRODUCT USED FOR UNKNOWN INDICATION
     Route: 065
  2. TASIGNA [Suspect]
     Active Substance: NILOTINIB
     Indication: NEUROENDOCRINE TUMOUR
     Dosage: 300 MG, BID
     Route: 048
     Dates: start: 20150725, end: 20180801

REACTIONS (3)
  - Pain [Not Recovered/Not Resolved]
  - Death [Fatal]
  - Oedema peripheral [Unknown]

NARRATIVE: CASE EVENT DATE: 20180730
